FAERS Safety Report 15859125 (Version 1)
Quarter: 2018Q4

REPORT INFORMATION
  Report Type: Spontaneous
  Country: US (occurrence: US)
  Receive Date: 20181228
  Receipt Date: 20181228
  Transmission Date: 20190205
  Serious: No
  Sender: FDA-Public Use
  Company Number: None

PATIENT
  Age: 61 Year
  Sex: Male
  Weight: 53.52 kg

DRUGS (1)
  1. PREGABALIN. [Suspect]
     Active Substance: PREGABALIN
     Route: 048
     Dates: start: 20180316, end: 20180702

REACTIONS (3)
  - Dyspnoea [None]
  - Neuropathy peripheral [None]
  - Peripheral swelling [None]

NARRATIVE: CASE EVENT DATE: 20180702
